FAERS Safety Report 18112236 (Version 2)
Quarter: 2020Q3

REPORT INFORMATION
  Report Type: Spontaneous
  Country: CN (occurrence: CN)
  Receive Date: 20200805
  Receipt Date: 20200810
  Transmission Date: 20201103
  Serious: Yes (Other)
  Sender: FDA-Public Use
  Company Number: CN-AMGEN-CHNSP2020125238

PATIENT
  Age: 56 Year
  Sex: Female

DRUGS (1)
  1. GRAN [Suspect]
     Active Substance: FILGRASTIM
     Indication: OVARIAN CANCER
     Dosage: 150 UG, BID
     Route: 058
     Dates: start: 20200626, end: 20200626

REACTIONS (1)
  - Quadriparesis [Recovering/Resolving]

NARRATIVE: CASE EVENT DATE: 20200626
